FAERS Safety Report 19440506 (Version 1)
Quarter: 2021Q2

REPORT INFORMATION
  Report Type: Spontaneous
  Country: US (occurrence: US)
  Receive Date: 20210621
  Receipt Date: 20210621
  Transmission Date: 20210717
  Serious: Yes (Other)
  Sender: FDA-Public Use
  Company Number: US-STRIDES ARCOLAB LIMITED-2020SP012951

PATIENT
  Sex: Female

DRUGS (2)
  1. HYDROCORTISONE TABLET [Suspect]
     Active Substance: HYDROCORTISONE
     Indication: ADRENAL INSUFFICIENCY
     Dosage: 10 MILLIGRAM
     Route: 048
     Dates: start: 2010
  2. HYDROCORTISONE TABLET [Suspect]
     Active Substance: HYDROCORTISONE
     Dosage: DOSE INCREASED
     Route: 048

REACTIONS (1)
  - Drug ineffective [Unknown]
